FAERS Safety Report 9225675 (Version 1)
Quarter: 2013Q2

REPORT INFORMATION
  Report Type: Spontaneous
  Country: US (occurrence: US)
  Receive Date: 20130411
  Receipt Date: 20130411
  Transmission Date: 20140414
  Serious: Yes (Hospitalization)
  Sender: FDA-Public Use
  Company Number: US-GLAXOSMITHKLINE-A1019644A

PATIENT
  Sex: Male

DRUGS (1)
  1. ADVAIR [Suspect]
     Route: 065
     Dates: start: 20120530

REACTIONS (2)
  - Pneumonia [Unknown]
  - Stent placement [Unknown]
